FAERS Safety Report 20749954 (Version 1)
Quarter: 2022Q2

REPORT INFORMATION
  Report Type: Spontaneous
  Country: US (occurrence: None)
  Receive Date: 20220425
  Receipt Date: 20220425
  Transmission Date: 20220721
  Serious: No
  Sender: FDA-Public Use
  Company Number: None

PATIENT
  Age: 56 Year
  Sex: Male
  Weight: 78.9 kg

DRUGS (1)
  1. BENZOYL PEROXIDE\ERYTHROMYCIN [Suspect]
     Active Substance: BENZOYL PEROXIDE\ERYTHROMYCIN
     Indication: Drug therapy
     Dosage: OTHER STRENGTH : 3% -5%;?OTHER QUANTITY : ONE JAR;?OTHER FREQUENCY : 4QD APLY BY TOPICA;?OTHER ROUTE
     Route: 050

REACTIONS (3)
  - Dermatitis contact [None]
  - Product prescribing error [None]
  - Wrong product administered [None]

NARRATIVE: CASE EVENT DATE: 20220423
